FAERS Safety Report 8903699 (Version 2)
Quarter: 2012Q4

REPORT INFORMATION
  Report Type: 
  Country: HU (occurrence: HU)
  Receive Date: 20121113
  Receipt Date: 20121120
  Transmission Date: 20130627
  Serious: Yes (Hospitalization, Other)
  Sender: FDA-Public Use
  Company Number: HU-BAYER-2012-116284

PATIENT
  Sex: Male

DRUGS (6)
  1. XARELTO [Suspect]
     Indication: CEREBROVASCULAR ACCIDENT PROPHYLAXIS
     Dosage: 15 mg, QD
     Route: 048
     Dates: start: 20121026, end: 20121028
  2. XARELTO [Suspect]
     Indication: ATRIAL FIBRILLATION
  3. ASPIRIN PROTECT [Suspect]
     Indication: VENOUS THROMBOEMBOLISM PROPHYLAXIS
     Dosage: 100 mg, QD
     Route: 048
     Dates: end: 201210
  4. SYNCUMAR [Suspect]
     Indication: VENOUS THROMBOEMBOLISM PROPHYLAXIS
     Dosage: UNK
     Route: 048
     Dates: end: 20121025
  5. FRAGMIN [Concomitant]
     Indication: ATRIAL FIBRILLATION
     Dosage: UNK
     Route: 051
     Dates: start: 20121029
  6. CONCOR [Concomitant]
     Indication: ATRIAL FIBRILLATION
     Route: 048

REACTIONS (3)
  - Haematuria [Recovered/Resolved]
  - Eczema [Recovering/Resolving]
  - Blood creatinine increased [Not Recovered/Not Resolved]
